FAERS Safety Report 7438018-7 (Version None)
Quarter: 2011Q2

REPORT INFORMATION
  Report Type: 
  Country: None (occurrence: None)
  Receive Date: 20110426
  Receipt Date: 20100818
  Transmission Date: 20111010
  Serious: No
  Sender: FDA-Public Use
  Company Number: US-MYLANLABS-2010S1015271

PATIENT
  Age: 54 Year
  Sex: Female

DRUGS (5)
  1. SEROQUEL [Concomitant]
  2. CLONAZEPAM [Concomitant]
  3. NITROFURANTOIN MONOHYDRATE/MACROCRYSTALS [Suspect]
     Indication: URINARY TRACT INFECTION
     Route: 048
     Dates: start: 20100726, end: 20100801
  4. DEPAKOTE [Concomitant]
  5. SYNTHROID [Concomitant]

REACTIONS (4)
  - FEELING HOT [None]
  - HEADACHE [None]
  - BURNING SENSATION [None]
  - EAR DISCOMFORT [None]
